FAERS Safety Report 7592306-2 (Version None)
Quarter: 2011Q3

REPORT INFORMATION
  Report Type: 
  Country: None (occurrence: None)
  Receive Date: 20110706
  Receipt Date: 20110630
  Transmission Date: 20111222
  Serious: Yes (Hospitalization)
  Sender: FDA-Public Use
  Company Number: US-BRISTOL-MYERS SQUIBB COMPANY-15870702

PATIENT
  Age: 66 Year
  Sex: Male
  Weight: 70 kg

DRUGS (1)
  1. COUMADIN [Suspect]
     Indication: THROMBOSIS
     Dosage: 1DF: 2TABS
     Route: 048
     Dates: start: 20110607

REACTIONS (2)
  - INFECTION [None]
  - HYPOTENSION [None]
